FAERS Safety Report 23333080 (Version 5)
Quarter: 2024Q1

REPORT INFORMATION
  Report Type: Spontaneous
  Country: US (occurrence: US)
  Receive Date: 20231222
  Receipt Date: 20240307
  Transmission Date: 20240410
  Serious: Yes (Other)
  Sender: FDA-Public Use
  Company Number: US-PFIZER INC-PV202300202534

PATIENT
  Age: 57 Year
  Sex: Female

DRUGS (2)
  1. IBRANCE [Suspect]
     Active Substance: PALBOCICLIB
     Dosage: 125 MG
  2. IBRANCE [Suspect]
     Active Substance: PALBOCICLIB
     Dosage: 125 MG
     Dates: start: 20240226

REACTIONS (25)
  - White blood cell count decreased [Unknown]
  - Dyspnoea [Unknown]
  - Chest pain [Unknown]
  - Pulmonary pain [Recovered/Resolved]
  - Musculoskeletal chest pain [Unknown]
  - Stomatitis [Unknown]
  - Decreased appetite [Unknown]
  - Contusion [Unknown]
  - Visual impairment [Unknown]
  - Alopecia [Unknown]
  - Skin disorder [Unknown]
  - Pleural effusion [Unknown]
  - Back pain [Recovering/Resolving]
  - Spinal pain [Unknown]
  - Red blood cell count decreased [Unknown]
  - Pain [Unknown]
  - Spinal pain [Unknown]
  - Facial pain [Unknown]
  - Swelling face [Unknown]
  - Glossodynia [Unknown]
  - Swollen tongue [Unknown]
  - Pain in extremity [Not Recovered/Not Resolved]
  - Peripheral swelling [Unknown]
  - Joint range of motion decreased [Unknown]
  - Product dose omission issue [Unknown]

NARRATIVE: CASE EVENT DATE: 20220101
